FAERS Safety Report 17291205 (Version 1)
Quarter: 2020Q1

REPORT INFORMATION
  Report Type: Spontaneous
  Country: US (occurrence: US)
  Receive Date: 20200121
  Receipt Date: 20200121
  Transmission Date: 20200409
  Serious: No
  Sender: FDA-Public Use
  Company Number: US-AMGEN-USASP2020008299

PATIENT
  Age: 56 Year
  Sex: Male
  Weight: 95 kg

DRUGS (5)
  1. ENBREL [Suspect]
     Active Substance: ETANERCEPT
     Dosage: 50MG/ML INJECTION ONCE A WEEK
     Route: 065
     Dates: start: 20190501
  2. ENBREL [Suspect]
     Active Substance: ETANERCEPT
     Indication: SYSTEMIC LUPUS ERYTHEMATOSUS
     Dosage: 50 MILLIGRAM, QWK
     Route: 065
     Dates: start: 201903
  3. ENBREL [Suspect]
     Active Substance: ETANERCEPT
     Indication: LUPUS-LIKE SYNDROME
     Dosage: 50 MILLIGRAM, QWK
     Route: 065
     Dates: start: 201904
  4. ENBREL [Suspect]
     Active Substance: ETANERCEPT
     Dosage: 50MG/ML INJECTION ONCE A WEEK
     Route: 065
     Dates: start: 20190508, end: 20190508
  5. ENBREL [Suspect]
     Active Substance: ETANERCEPT
     Indication: RHEUMATOID ARTHRITIS
     Dosage: 50 MILLIGRAM, QWK
     Route: 065

REACTIONS (16)
  - Drug ineffective [Unknown]
  - Drug hypersensitivity [Unknown]
  - Limb discomfort [Recovering/Resolving]
  - Injection site rash [Unknown]
  - Injection site bruising [Unknown]
  - Product use in unapproved indication [Unknown]
  - Erythema [Recovering/Resolving]
  - Injection site erythema [Unknown]
  - Off label use [Unknown]
  - Wrong technique in product usage process [Unknown]
  - Peripheral swelling [Recovering/Resolving]
  - Contusion [Recovering/Resolving]
  - Pruritus [Recovering/Resolving]
  - Injection site pruritus [Unknown]
  - Rash [Recovering/Resolving]
  - Injection site swelling [Unknown]

NARRATIVE: CASE EVENT DATE: 201904
